FAERS Safety Report 17556563 (Version 1)
Quarter: 2020Q1

REPORT INFORMATION
  Report Type: Spontaneous
  Country: CN (occurrence: CN)
  Receive Date: 20200318
  Receipt Date: 20200318
  Transmission Date: 20200409
  Serious: Yes (Other)
  Sender: FDA-Public Use
  Company Number: CN-PFIZER INC-2020115810

PATIENT
  Sex: Female

DRUGS (2)
  1. NORVASC [Suspect]
     Active Substance: AMLODIPINE BESYLATE
     Indication: HYPERTENSION
     Dosage: 1 TABLET, ONCE A DAY (WHEN THE HIGH PRESSURE WAS INCREASED TO MORE THAN 140)
     Route: 048
  2. NORVASC [Suspect]
     Active Substance: AMLODIPINE BESYLATE
     Dosage: 0.5 TABLET, ONCE A DAY (WHEN THE HIGH PRESSURE WAS MAINTAINED AT 140)
     Route: 048

REACTIONS (4)
  - Carotid artery stenosis [Unknown]
  - Dry skin [Unknown]
  - Pruritus [Unknown]
  - Blood pressure inadequately controlled [Unknown]
